FAERS Safety Report 16025324 (Version 2)
Quarter: 2019Q2

REPORT INFORMATION
  Report Type: Spontaneous
  Country: US (occurrence: US)
  Receive Date: 20190301
  Receipt Date: 20190403
  Transmission Date: 20190711
  Serious: Yes (Other)
  Sender: FDA-Public Use
  Company Number: US-PFIZER INC-2019088637

PATIENT
  Age: 63 Year
  Sex: Female

DRUGS (5)
  1. NICARDIPINE [Suspect]
     Active Substance: NICARDIPINE
     Dosage: 4 MG, 2X/DAY (INTRAVENTRICULAR, FOR A TOTAL OF 16 DOSES OVER 8 DAYS)
  2. VERAPAMIL HCL [Suspect]
     Active Substance: VERAPAMIL HYDROCHLORIDE
     Indication: VASOSPASM
     Dosage: UNK
     Route: 013
  3. NICARDIPINE [Suspect]
     Active Substance: NICARDIPINE
     Indication: VASOSPASM
     Dosage: 25 MG, UNK (WAS MANUALLY INJECTED INTO THE LEFT ICA OVER 10 MINUTES)
     Route: 013
  4. NICARDIPINE [Suspect]
     Active Substance: NICARDIPINE
     Dosage: 25 MG, UNK (WAS INJECTED IN RIGHT ICA OVER 10 MINUTES)
     Route: 013
  5. NICARDIPINE [Suspect]
     Active Substance: NICARDIPINE
     Dosage: 25 MG, UNK (WAS INJECTED IN THE LEFT VA OVER 10 MINUTES)
     Route: 013

REACTIONS (1)
  - Drug ineffective for unapproved indication [Recovering/Resolving]
